FAERS Safety Report 18134158 (Version 1)
Quarter: 2020Q3

REPORT INFORMATION
  Report Type: Spontaneous
  Country: DE (occurrence: DE)
  Receive Date: 20200811
  Receipt Date: 20200811
  Transmission Date: 20201103
  Serious: Yes (Hospitalization)
  Sender: FDA-Public Use
  Company Number: DE-MYLANLABS-2019M1120453

PATIENT
  Age: 67 Year
  Sex: Female

DRUGS (7)
  1. FULVESTRANT. [Suspect]
     Active Substance: FULVESTRANT
     Indication: BREAST CANCER
     Dosage: 500 MG, CYCLIC (EVERY 28 DAYS)
     Route: 030
     Dates: start: 20180220
  2. DENOSUMAB [Suspect]
     Active Substance: DENOSUMAB
     Indication: BREAST CANCER
     Dosage: 120 MG, CYCLIC (EVERY 28 DAYS)
     Route: 058
     Dates: start: 20180220
  3. PALBOCICLIB [Suspect]
     Active Substance: PALBOCICLIB
     Dosage: 75 MILLIGRAM, QD (75 MG, DAILY)
     Route: 048
     Dates: start: 201808
  4. PALBOCICLIB [Suspect]
     Active Substance: PALBOCICLIB
     Indication: BREAST CANCER
     Dosage: 125 MG, DAILY, FOR 21 DAY CYCLE
     Route: 048
     Dates: start: 20180220, end: 20180319
  5. PALBOCICLIB [Suspect]
     Active Substance: PALBOCICLIB
     Dosage: 75MG, DAILY, FOR 21 DAY CYCLE
     Route: 048
     Dates: start: 201906
  6. PALBOCICLIB [Suspect]
     Active Substance: PALBOCICLIB
     Dosage: 100MG, DAILY, FOR 21 DAY CYCLE
     Route: 048
     Dates: start: 20180404
  7. PALBOCICLIB [Suspect]
     Active Substance: PALBOCICLIB
     Dosage: 75 MILLIGRAM, CYCLE (75MG, DAILY, FOR 21 DAY CYCLE)
     Route: 048
     Dates: start: 201806

REACTIONS (2)
  - Neoplasm progression [Unknown]
  - Neutropenia [Not Recovered/Not Resolved]

NARRATIVE: CASE EVENT DATE: 201906
